FAERS Safety Report 12237083 (Version 2)
Quarter: 2016Q2

REPORT INFORMATION
  Report Type: Report from Study
  Country: US (occurrence: US)
  Receive Date: 20160405
  Receipt Date: 20160516
  Transmission Date: 20160815
  Serious: Yes (Other)
  Sender: FDA-Public Use
  Company Number: US-AMGEN-USASL2016039963

PATIENT
  Age: 37 Year
  Sex: Female

DRUGS (6)
  1. GANIRELIX [Concomitant]
     Active Substance: GANIRELIX
     Dosage: UNK UNK, QD
     Route: 058
     Dates: start: 201304, end: 201304
  2. ENBREL [Suspect]
     Active Substance: ETANERCEPT
     Indication: RHEUMATOID ARTHRITIS
     Dosage: 50 ML, QWK
     Route: 058
     Dates: start: 200608, end: 201304
  3. HCG [Concomitant]
     Active Substance: GONADOTROPHIN, CHORIONIC
     Dosage: 1000 ^ONCE^
     Route: 058
     Dates: start: 201304, end: 201304
  4. SYNTHROID [Concomitant]
     Active Substance: LEVOTHYROXINE SODIUM
     Indication: HYPOTHYROIDISM
     Dosage: 133 MG, QD
     Route: 048
     Dates: start: 201304, end: 201304
  5. GONAL-F [Concomitant]
     Active Substance: FOLLITROPIN
     Dosage: 225 UNK, QD
     Route: 058
     Dates: start: 201304, end: 201304
  6. MENOPUR [Concomitant]
     Active Substance: FOLLICLE STIMULATING HORMONE BETA POLYPEPTIDE\LUTROPIN ALFA
     Dosage: 150 UNK, QD
     Route: 058
     Dates: start: 201304, end: 201304

REACTIONS (7)
  - In vitro fertilisation [Unknown]
  - Joint swelling [Recovered/Resolved]
  - Emotional distress [Unknown]
  - Stress [Unknown]
  - Maternal exposure during pregnancy [Recovered/Resolved]
  - Gestational diabetes [Recovered/Resolved]
  - Bursitis [Recovered/Resolved]

NARRATIVE: CASE EVENT DATE: 2013
